FAERS Safety Report 11079299 (Version 2)
Quarter: 2015Q3

REPORT INFORMATION
  Report Type: Report from Study
  Country: VE (occurrence: VE)
  Receive Date: 20150430
  Receipt Date: 20150707
  Transmission Date: 20151125
  Serious: Yes (Death)
  Sender: FDA-Public Use
  Company Number: VE-SA-2015SA055535

PATIENT
  Sex: Male

DRUGS (1)
  1. LANTUS [Suspect]
     Active Substance: INSULIN GLARGINE
     Indication: DIABETES MELLITUS
     Route: 058
     Dates: start: 2003, end: 201311

REACTIONS (1)
  - Death [Fatal]

NARRATIVE: CASE EVENT DATE: 201311
